FAERS Safety Report 9325475 (Version 1)
Quarter: 2013Q2

REPORT INFORMATION
  Report Type: Spontaneous
  Country: US (occurrence: None)
  Receive Date: 20130531
  Receipt Date: 20130531
  Transmission Date: 20140414
  Serious: Yes (Hospitalization)
  Sender: FDA-Public Use
  Company Number: None

PATIENT
  Age: 89 Year
  Sex: Female

DRUGS (2)
  1. WARFARIN [Suspect]
     Indication: DEEP VEIN THROMBOSIS
     Dosage: BEYOND 12 DAYS
     Route: 048
     Dates: start: 20130306, end: 20130318
  2. WARFARIN [Suspect]
     Indication: CEREBROVASCULAR ACCIDENT
     Dosage: BEYOND 12 DAYS
     Route: 048
     Dates: start: 20130306, end: 20130318

REACTIONS (7)
  - Dehydration [None]
  - Mental status changes [None]
  - Hypotension [None]
  - Hyperhidrosis [None]
  - Waist circumference increased [None]
  - Retroperitoneal haemorrhage [None]
  - International normalised ratio increased [None]
